FAERS Safety Report 14327385 (Version 2)
Quarter: 2018Q1

REPORT INFORMATION
  Report Type: Spontaneous
  Country: US (occurrence: US)
  Receive Date: 20171227
  Receipt Date: 20180309
  Transmission Date: 20180509
  Serious: No
  Sender: FDA-Public Use
  Company Number: US-PFIZER INC-2017508923

PATIENT
  Age: 77 Year
  Sex: Male
  Weight: 68 kg

DRUGS (7)
  1. ATROPINE SULFATE/DIPHENOXYLATE HYDROCHLORIDE [Suspect]
     Active Substance: ATROPINE SULFATE\DIPHENOXYLATE HYDROCHLORIDE
     Indication: DIARRHOEA
     Dosage: 2.5 MG, 2X/DAY(1IN THE MORNING AND 1 AT NIGHT)
     Route: 048
  2. ALFUZOSIN HCL [Concomitant]
     Active Substance: ALFUZOSIN HYDROCHLORIDE
     Indication: PROSTATE INFECTION
     Dosage: 10 MG, 1X/DAY
  3. HYDROXYCHLOROQUINE SULFATE. [Concomitant]
     Active Substance: HYDROXYCHLOROQUINE SULFATE
     Indication: ARTHRITIS
     Dosage: 200 MG, 2X/DAY
  4. OMEPRAZOLE. [Concomitant]
     Active Substance: OMEPRAZOLE
     Indication: REFLUX GASTRITIS
     Dosage: 40 MG, 1X/DAY
  5. ATROPINE SULFATE/DIPHENOXYLATE HYDROCHLORIDE [Suspect]
     Active Substance: ATROPINE SULFATE\DIPHENOXYLATE HYDROCHLORIDE
     Dosage: UNK, ALTERNATE DAY
     Dates: start: 201711
  6. ATROPINE SULFATE/DIPHENOXYLATE HYDROCHLORIDE [Suspect]
     Active Substance: ATROPINE SULFATE\DIPHENOXYLATE HYDROCHLORIDE
     Dosage: UNK, 1X/DAY (AT NIGHT)
     Dates: start: 201710
  7. ECOTRIN [Concomitant]
     Active Substance: ASPIRIN
     Indication: CARDIAC DISORDER
     Dosage: 81 MG, 1X/DAY

REACTIONS (4)
  - Flatulence [Recovered/Resolved]
  - Flushing [Not Recovered/Not Resolved]
  - Erythema [Unknown]
  - Dry skin [Not Recovered/Not Resolved]
